FAERS Safety Report 5301713-X (Version None)
Quarter: 2007Q2

REPORT INFORMATION
  Report Type: 
  Country: None (occurrence: None)
  Receive Date: 20070419
  Receipt Date: 20070411
  Transmission Date: 20071010
  Serious: Yes (Death, Life-Threatening, Hospitalization, Other)
  Sender: FDA-Public Use
  Company Number: US-JNJFOC-20070307051

PATIENT
  Age: 47 Year
  Sex: Male

DRUGS (27)
  1. PREZISTA [Suspect]
     Route: 048
  2. PREZISTA [Suspect]
     Indication: HIV INFECTION
     Route: 048
  3. MK0518 [Suspect]
     Route: 048
  4. MK0518 [Suspect]
     Indication: HIV INFECTION
     Route: 048
  5. RITONAVIR [Suspect]
     Route: 048
  6. RITONAVIR [Suspect]
     Indication: HIV INFECTION
     Route: 048
  7. TRUVADA [Suspect]
     Route: 048
  8. TRUVADA [Suspect]
     Indication: HIV INFECTION
     Route: 048
  9. VFEND [Concomitant]
     Route: 065
  10. FENTANYL [Concomitant]
     Route: 065
  11. LEVAQUIN [Concomitant]
     Route: 065
  12. ACYCLOVIR [Concomitant]
     Route: 065
  13. ALDACTONE [Concomitant]
     Route: 048
  14. FLUORINEF [Concomitant]
     Route: 065
  15. PROTONIX [Concomitant]
     Route: 065
  16. SEPTRA DS [Concomitant]
     Route: 065
  17. ETHAMBUTOL HCL [Concomitant]
     Route: 065
  18. AZITHROMYCIN [Concomitant]
     Route: 065
  19. DILAUDID [Concomitant]
     Route: 065
  20. REGLAN [Concomitant]
     Route: 065
  21. ATIVAN [Concomitant]
     Route: 065
  22. COMPAZINE [Concomitant]
     Route: 065
  23. LOMOTIL [Concomitant]
     Route: 065
  24. OPIUM [Concomitant]
     Route: 065
  25. ANZEMET [Concomitant]
     Route: 065
  26. AMIKACIN [Concomitant]
     Route: 065
  27. HYDROCORTISONE [Concomitant]
     Route: 065

REACTIONS (7)
  - ADVERSE DRUG REACTION [None]
  - DIARRHOEA [None]
  - DRUG ERUPTION [None]
  - HYPERKALAEMIA [None]
  - NIGHT SWEATS [None]
  - PYREXIA [None]
  - RENAL FAILURE ACUTE [None]
